FAERS Safety Report 5322381-7 (Version None)
Quarter: 2007Q2

REPORT INFORMATION
  Report Type: 
  Country: None (occurrence: None)
  Receive Date: 20070220
  Receipt Date: 20061018
  Transmission Date: 20071010
  Serious: No
  Sender: FDA-Public Use
  Company Number: TPA2006A01823

PATIENT
  Age: 79 Year
  Sex: Male
  Weight: 68.0396 kg

DRUGS (4)
  1. ROZEREM [Suspect]
     Indication: SLEEP DISORDER
     Dosage: 8 MG, QHS, PER ORAL
     Route: 048
     Dates: start: 20061016
  2. ALLOPURINOL [Concomitant]
  3. TOPROL-XL [Concomitant]
  4. LAMICTAL [Concomitant]

REACTIONS (1)
  - INSOMNIA [None]
